FAERS Safety Report 5499410-3 (Version None)
Quarter: 2007Q4

REPORT INFORMATION
  Report Type: 
  Country: None (occurrence: None)
  Receive Date: 20071026
  Receipt Date: 20071018
  Transmission Date: 20080405
  Serious: Yes (Hospitalization)
  Sender: FDA-Public Use
  Company Number: B0492022A

PATIENT
  Age: 84 Year
  Sex: Male

DRUGS (4)
  1. ZELITREX [Suspect]
     Indication: HERPES VIRUS INFECTION
     Route: 048
     Dates: start: 20070405, end: 20070430
  2. AMLOR [Concomitant]
  3. DETENSIEL [Concomitant]
  4. NITRODERM [Concomitant]

REACTIONS (2)
  - GENERAL PHYSICAL HEALTH DETERIORATION [None]
  - THROMBOCYTOPENIA [None]
